FAERS Safety Report 18869441 (Version 2)
Quarter: 2021Q1

REPORT INFORMATION
  Report Type: Report from Study
  Country: US (occurrence: US)
  Receive Date: 20210210
  Receipt Date: 20210326
  Transmission Date: 20210420
  Serious: No
  Sender: FDA-Public Use
  Company Number: US-BIOVITRUM-2020US8225

PATIENT
  Age: 6 Year
  Sex: Female

DRUGS (5)
  1. PREDNISONE. [Concomitant]
     Active Substance: PREDNISONE
  2. KINERET [Suspect]
     Active Substance: ANAKINRA
     Indication: BLOOD TEST ABNORMAL
     Route: 058
     Dates: start: 20201224, end: 20210121
  3. KINERET [Suspect]
     Active Substance: ANAKINRA
     Route: 058
     Dates: start: 20190409
  4. ASPIRIN. [Concomitant]
     Active Substance: ASPIRIN
  5. FAMOTIDINE. [Concomitant]
     Active Substance: FAMOTIDINE

REACTIONS (10)
  - Injection site pain [Unknown]
  - Injection site mass [Recovered/Resolved]
  - Erythema [Recovered/Resolved]
  - Pruritus [Recovered/Resolved]
  - Blood test abnormal [Unknown]
  - Feeling hot [Recovered/Resolved]
  - Hypersensitivity [Recovered/Resolved]
  - Off label use [Recovered/Resolved]
  - Disease progression [Unknown]
  - Swelling [Recovered/Resolved]

NARRATIVE: CASE EVENT DATE: 20190409
